FAERS Safety Report 9611876 (Version 2)
Quarter: 2013Q4

REPORT INFORMATION
  Report Type: Report from Study
  Country: CA (occurrence: CA)
  Receive Date: 20131010
  Receipt Date: 20131226
  Transmission Date: 20140711
  Serious: Yes (Hospitalization)
  Sender: FDA-Public Use
  Company Number: CA-JNJFOC-20131004994

PATIENT
  Age: 59 Year
  Sex: Female
  Weight: 63.5 kg

DRUGS (5)
  1. SIMPONI [Suspect]
     Indication: RHEUMATOID ARTHRITIS
     Route: 058
     Dates: start: 20130108
  2. SIMPONI [Suspect]
     Indication: RHEUMATOID ARTHRITIS
     Route: 058
     Dates: start: 20130925
  3. MTX [Concomitant]
     Route: 058
     Dates: start: 20131001
  4. MTX [Concomitant]
     Route: 058
  5. FOLIC ACID [Concomitant]
     Route: 065

REACTIONS (1)
  - Hip arthroplasty [Recovered/Resolved]
